FAERS Safety Report 15812464 (Version 1)
Quarter: 2019Q1

REPORT INFORMATION
  Report Type: Spontaneous
  Country: US (occurrence: US)
  Receive Date: 20190111
  Receipt Date: 20190111
  Transmission Date: 20190417
  Serious: Yes (Hospitalization, Other)
  Sender: FDA-Public Use
  Company Number: US-BAYER-2019-005636

PATIENT
  Age: 20 Year
  Sex: Male
  Weight: 154 kg

DRUGS (1)
  1. CORICIDIN HBP COUGH AND COLD [Suspect]
     Active Substance: CHLORPHENIRAMINE MALEATE\DEXTROMETHORPHAN HYDROBROMIDE
     Dosage: 24 DF
     Route: 048
     Dates: start: 20190101, end: 20190102

REACTIONS (3)
  - Insomnia [Recovered/Resolved]
  - Hallucination [Not Recovered/Not Resolved]
  - Mental disorder [Not Recovered/Not Resolved]

NARRATIVE: CASE EVENT DATE: 20190101
